FAERS Safety Report 22366783 (Version 2)
Quarter: 2023Q2

REPORT INFORMATION
  Report Type: Spontaneous
  Country: IN (occurrence: IN)
  Receive Date: 20230525
  Receipt Date: 20230529
  Transmission Date: 20230722
  Serious: Yes (Other)
  Sender: FDA-Public Use
  Company Number: IN-PFIZER INC-PV202300091559

PATIENT
  Age: 51 Year
  Sex: Female

DRUGS (3)
  1. PALBOCICLIB [Suspect]
     Active Substance: PALBOCICLIB
     Dosage: UNK
     Dates: start: 202211, end: 202212
  2. PALBOCICLIB [Suspect]
     Active Substance: PALBOCICLIB
     Dosage: 125 MG, 1X/DAY
     Route: 048
     Dates: start: 202304
  3. LETROZOLE [Concomitant]
     Active Substance: LETROZOLE

REACTIONS (4)
  - Aorticopulmonary septal defect [Unknown]
  - Pleural effusion [Unknown]
  - Neoplasm progression [Unknown]
  - Inflammation [Unknown]
